FAERS Safety Report 25239557 (Version 2)
Quarter: 2025Q2

REPORT INFORMATION
  Report Type: Spontaneous
  Country: US (occurrence: US)
  Receive Date: 20250425
  Receipt Date: 20250523
  Transmission Date: 20250716
  Serious: No
  Sender: NOVUGEN PHARMA SDN. BHD.
  Company Number: US-Novugen Pharma Sdn. Bhd.-2175586

PATIENT
  Sex: Female

DRUGS (1)
  1. MIDODRINE HYDROCHLORIDE [Suspect]
     Active Substance: MIDODRINE HYDROCHLORIDE
     Indication: Postural orthostatic tachycardia syndrome
     Dates: start: 20250228

REACTIONS (7)
  - Dizziness [Unknown]
  - Product substitution issue [Unknown]
  - Headache [Unknown]
  - Hypoaesthesia [Unknown]
  - Paraesthesia [Unknown]
  - Palpitations [Unknown]
  - Blood pressure decreased [Unknown]

NARRATIVE: CASE EVENT DATE: 20250228
